FAERS Safety Report 26046252 (Version 2)
Quarter: 2025Q4

REPORT INFORMATION
  Report Type: Spontaneous
  Country: US (occurrence: US)
  Receive Date: 20251114
  Receipt Date: 20251230
  Transmission Date: 20260118
  Serious: Yes (Disabling, Other)
  Sender: SANOFI AVENTIS
  Company Number: US-SA-2025SA337756

PATIENT
  Age: 51 Year
  Sex: Female
  Weight: 98.18 kg

DRUGS (28)
  1. KEVZARA [Suspect]
     Active Substance: SARILUMAB
     Indication: Rheumatoid arthritis
     Dosage: 200 MG, QOW
     Route: 058
     Dates: start: 20250918
  2. CELECOXIB [Concomitant]
     Active Substance: CELECOXIB
  3. NURTEC ODT [Concomitant]
     Active Substance: RIMEGEPANT SULFATE
  4. MONTELUKAST SODIUM [Concomitant]
     Active Substance: MONTELUKAST SODIUM
  5. VALACYCLOVIR [Concomitant]
     Active Substance: VALACYCLOVIR HYDROCHLORIDE
  6. CARVEDILOL [Concomitant]
     Active Substance: CARVEDILOL
  7. ROPINIROLE HYDROCHLORIDE [Concomitant]
     Active Substance: ROPINIROLE HYDROCHLORIDE
  8. LINZESS [Concomitant]
     Active Substance: LINACLOTIDE
  9. CAPLYTA [Concomitant]
     Active Substance: LUMATEPERONE
     Dosage: UNK
  10. TRIAMCINOLONE ACETONIDE [Concomitant]
     Active Substance: TRIAMCINOLONE ACETONIDE
  11. MOUNJARO [Concomitant]
     Active Substance: TIRZEPATIDE
  12. ONDANSETRON [Concomitant]
     Active Substance: ONDANSETRON
  13. ESTRADIOL [Concomitant]
     Active Substance: ESTRADIOL
     Dosage: UNK UNK, BIW
  14. ESTRADIOL [Concomitant]
     Active Substance: ESTRADIOL
     Dosage: TWICE WEEKLY
  15. PROCTOZONE HC [Concomitant]
     Active Substance: HYDROCORTISONE
  16. GABAPENTIN [Concomitant]
     Active Substance: GABAPENTIN
  17. POTASSIUM CHLORIDE [Concomitant]
     Active Substance: POTASSIUM CHLORIDE
  18. GUANFACINE HYDROCHLORIDE [Concomitant]
     Active Substance: GUANFACINE HYDROCHLORIDE
  19. QUETIAPINE FUMARATE [Concomitant]
     Active Substance: QUETIAPINE FUMARATE
  20. PRAZOSIN HYDROCHLORIDE [Concomitant]
     Active Substance: PRAZOSIN HYDROCHLORIDE
  21. ALBUTEROL SULFATE [Concomitant]
     Active Substance: ALBUTEROL SULFATE
  22. METHOCARBAMOL [Concomitant]
     Active Substance: METHOCARBAMOL
  23. ACETAMINOPHEN\HYDROCODONE [Concomitant]
     Active Substance: ACETAMINOPHEN\HYDROCODONE
  24. DIAZEPAM [Concomitant]
     Active Substance: DIAZEPAM
  25. LAMOTRIGINE [Concomitant]
     Active Substance: LAMOTRIGINE
  26. MINERALS\VITAMINS [Concomitant]
     Active Substance: MINERALS\VITAMINS
  27. CLONIDINE HYDROCHLORIDE [Concomitant]
     Active Substance: CLONIDINE HYDROCHLORIDE
     Dosage: UNK
  28. BEANO [Concomitant]
     Active Substance: ASPERGILLUS NIGER .ALPHA.-GALACTOSIDASE
     Dosage: UNK

REACTIONS (4)
  - Amyotrophic lateral sclerosis [Unknown]
  - Muscular weakness [Unknown]
  - Paraplegia [Unknown]
  - Pain [Unknown]

NARRATIVE: CASE EVENT DATE: 20250101
